FAERS Safety Report 8806320 (Version 2)
Quarter: 2012Q4

REPORT INFORMATION
  Report Type: 
  Country: US (occurrence: US)
  Receive Date: 20120925
  Receipt Date: 20121226
  Transmission Date: 20130627
  Serious: Yes (Hospitalization)
  Sender: FDA-Public Use
  Company Number: US-BAYER-2012-098215

PATIENT
  Age: 27 Year
  Sex: Female

DRUGS (6)
  1. YAZ [Suspect]
  2. YASMIN [Suspect]
     Indication: MENSTRUAL CYCLE MANAGEMENT
  3. OCELLA [Suspect]
  4. FENTANYL [Concomitant]
  5. ZOFRAN [Concomitant]
  6. IRON [Concomitant]
     Dosage: 325 mg, UNK
     Route: 048

REACTIONS (4)
  - Injury [None]
  - Cerebral venous thrombosis [None]
  - Off label use [None]
  - Jugular vein thrombosis [None]
